FAERS Safety Report 7889354-1 (Version None)
Quarter: 2011Q4

REPORT INFORMATION
  Report Type: 
  Country: None (occurrence: None)
  Receive Date: 20111103
  Receipt Date: 20111027
  Transmission Date: 20120403
  Serious: Yes (Other)
  Sender: FDA-Public Use
  Company Number: US-BAYER-2011-105417

PATIENT
  Age: 45 Year
  Sex: Female

DRUGS (1)
  1. AVELOX [Suspect]
     Indication: ALLERGIC SINUSITIS
     Dosage: DAILY DOSE 400 MG
     Route: 048

REACTIONS (4)
  - HYPERSENSITIVITY [None]
  - EAR PRURITUS [None]
  - URTICARIA [None]
  - EYE PRURITUS [None]
